FAERS Safety Report 4314369-X (Version None)
Quarter: 2004Q1

REPORT INFORMATION
  Report Type: 
  Country: None (occurrence: None)
  Receive Date: 20040308
  Receipt Date: 20040302
  Transmission Date: 20041129
  Serious: Yes (Hospitalization)
  Sender: FDA-Public Use
  Company Number: 04-NIP00028

PATIENT
  Sex: Female

DRUGS (3)
  1. NIPENT [Suspect]
     Indication: CHRONIC LYMPHOCYTIC LEUKAEMIA
  2. CYCLOPHOSPHAMIDE [Suspect]
  3. RITUXIMAB [Suspect]

REACTIONS (5)
  - CONDITION AGGRAVATED [None]
  - FLUID OVERLOAD [None]
  - HYPERTENSION [None]
  - PNEUMONIA [None]
  - RENAL FAILURE [None]
